FAERS Safety Report 10728874 (Version 1)
Quarter: 2015Q1

REPORT INFORMATION
  Report Type: Spontaneous
  Country: US (occurrence: None)
  Receive Date: 20150120
  Receipt Date: 20150120
  Transmission Date: 20150721
  Serious: Yes (Other)
  Sender: FDA-Public Use
  Company Number: None

PATIENT
  Age: 25 Year
  Sex: Male
  Weight: 68.04 kg

DRUGS (1)
  1. MENS ROGAINE UNSCENTED FORMULA [Suspect]
     Active Substance: MINOXIDIL
     Indication: ALOPECIA
     Dosage: TWICE DAILY APPLIED TO A SURFACE, USUALLY THE SKIN
     Route: 061
     Dates: start: 20110402, end: 20120430

REACTIONS (6)
  - Fatigue [None]
  - Skin discolouration [None]
  - Dark circles under eyes [None]
  - Libido decreased [None]
  - Decreased interest [None]
  - Somnolence [None]

NARRATIVE: CASE EVENT DATE: 20120117
